FAERS Safety Report 5192357-1 (Version None)
Quarter: 2006Q4

REPORT INFORMATION
  Report Type: 
  Country: None (occurrence: None)
  Receive Date: 20061227
  Receipt Date: 20061130
  Transmission Date: 20070319
  Serious: Yes (Hospitalization, Other)
  Sender: FDA-Public Use
  Company Number: JP-PFIZER INC-2006149740

PATIENT
  Sex: Male
  Weight: 43 kg

DRUGS (2)
  1. VIAGRA [Suspect]
     Indication: ERECTILE DYSFUNCTION
     Route: 048
     Dates: start: 20060201, end: 20061001
  2. OMEPRAL [Concomitant]
     Route: 048
     Dates: start: 20061104, end: 20061109

REACTIONS (8)
  - ALANINE AMINOTRANSFERASE INCREASED [None]
  - ANOREXIA [None]
  - ASPARTATE AMINOTRANSFERASE INCREASED [None]
  - BLOOD BILIRUBIN INCREASED [None]
  - CHROMATURIA [None]
  - EPIGASTRIC DISCOMFORT [None]
  - LIVER DISORDER [None]
  - REFLUX OESOPHAGITIS [None]
